FAERS Safety Report 8546684-8 (Version None)
Quarter: 2012Q3

REPORT INFORMATION
  Report Type: 
  Country: None (occurrence: None)
  Receive Date: 20120727
  Receipt Date: 20120126
  Transmission Date: 20120928
  Serious: No
  Sender: FDA-Public Use
  Company Number: US-ASTRAZENECA-2012SE05532

PATIENT
  Sex: Male

DRUGS (2)
  1. PSYCHOTROPIC AGENTS [Concomitant]
  2. SEROQUEL [Suspect]
     Route: 048

REACTIONS (1)
  - AGEUSIA [None]
